FAERS Safety Report 9887683 (Version 1)
Quarter: 2014Q1

REPORT INFORMATION
  Report Type: Report from Study
  Country: US (occurrence: US)
  Receive Date: 20140211
  Receipt Date: 20140211
  Transmission Date: 20141002
  Serious: Yes (Other)
  Sender: FDA-Public Use
  Company Number: US-JNJFOC-20140119577

PATIENT
  Sex: Male

DRUGS (4)
  1. STELARA [Suspect]
     Indication: PSORIASIS
     Dosage: EVERY 3 TO 4 MONTHS
     Route: 058
     Dates: start: 2006
  2. DEPAKOTE [Concomitant]
     Indication: CONVULSION
     Route: 065
     Dates: start: 1996
  3. LOMOTIL [Concomitant]
     Indication: ADVERSE DRUG REACTION
     Route: 065
  4. OXYBUTIN [Concomitant]
     Indication: ADVERSE DRUG REACTION
     Route: 065

REACTIONS (4)
  - Convulsion [Recovered/Resolved]
  - Emotional distress [Recovered/Resolved]
  - Activities of daily living impaired [Recovered/Resolved]
  - Disorientation [Recovered/Resolved]
